FAERS Safety Report 21729706 (Version 1)
Quarter: 2022Q4

REPORT INFORMATION
  Report Type: Spontaneous
  Country: US (occurrence: US)
  Receive Date: 20221214
  Receipt Date: 20221214
  Transmission Date: 20230112
  Serious: No
  Sender: FDA-Public Use
  Company Number: US-PERRIGO-22US008800

PATIENT
  Age: 57 Year
  Sex: Female
  Weight: 87.528 kg

DRUGS (9)
  1. TIOCONAZOLE [Suspect]
     Active Substance: TIOCONAZOLE
     Indication: Vulvovaginal mycotic infection
     Dosage: 300 MG, PRN
     Route: 067
     Dates: start: 2022, end: 2022
  2. TIOCONAZOLE [Suspect]
     Active Substance: TIOCONAZOLE
     Dosage: 300 MG, SINGLE
     Route: 067
     Dates: start: 20220618, end: 20220618
  3. HUMIRA [Concomitant]
     Active Substance: ADALIMUMAB
     Indication: Psoriatic arthropathy
     Dosage: UNKNOWN, EVERY 2 WEEKS
     Route: 065
     Dates: start: 202203
  4. OZEMPIC [Concomitant]
     Active Substance: SEMAGLUTIDE
     Indication: Polycystic ovaries
     Dosage: UNKNOWN, WEEKLY
     Route: 065
  5. OZEMPIC [Concomitant]
     Active Substance: SEMAGLUTIDE
     Indication: Metabolic syndrome
  6. METFORMIN [Concomitant]
     Active Substance: METFORMIN HYDROCHLORIDE
     Indication: Polycystic ovaries
     Dosage: UNKNOWN, UNKNOWN
     Route: 065
  7. METFORMIN [Concomitant]
     Active Substance: METFORMIN HYDROCHLORIDE
     Indication: Metabolic syndrome
  8. BYSTOLIC [Concomitant]
     Active Substance: NEBIVOLOL HYDROCHLORIDE
     Indication: Hypertension
     Dosage: 5 MG, UNKNOWN
     Route: 065
  9. LIPITOR [Concomitant]
     Active Substance: ATORVASTATIN CALCIUM
     Indication: Blood cholesterol increased
     Dosage: UNKNOWN, UNKNOWN
     Route: 065

REACTIONS (1)
  - Vulvovaginal burning sensation [Recovered/Resolved]

NARRATIVE: CASE EVENT DATE: 20220618
